FAERS Safety Report 5093449-8 (Version None)
Quarter: 2006Q3

REPORT INFORMATION
  Report Type: 
  Country: None (occurrence: None)
  Receive Date: 20060828
  Receipt Date: 20060816
  Transmission Date: 20061208
  Serious: Yes (Hospitalization, Other)
  Sender: FDA-Public Use
  Company Number: 2006-BP-09661RO

PATIENT
  Age: 22 Year
  Sex: Male

DRUGS (1)
  1. MEFLOQUINE [Suspect]
     Dosage: 250 MG PER WEEK (250 MG), PO

REACTIONS (9)
  - DELUSION [None]
  - DELUSION OF GRANDEUR [None]
  - DELUSION OF REFERENCE [None]
  - DISINHIBITION [None]
  - HALLUCINATION, VISUAL [None]
  - INSOMNIA [None]
  - MANIA [None]
  - PERSECUTORY DELUSION [None]
  - PSYCHOTIC DISORDER [None]
